FAERS Safety Report 21914859 (Version 3)
Quarter: 2023Q1

REPORT INFORMATION
  Report Type: Report from Study
  Country: CA (occurrence: CA)
  Receive Date: 20230126
  Receipt Date: 20230221
  Transmission Date: 20230417
  Serious: Yes (Other)
  Sender: FDA-Public Use
  Company Number: CA-CELLTRION INC.-2023CA001388

PATIENT

DRUGS (4)
  1. TRUXIMA [Suspect]
     Active Substance: RITUXIMAB-ABBS
     Indication: Vasculitis
     Dosage: 500 MG
     Route: 042
     Dates: start: 20220706
  2. ELIQUIS [Concomitant]
     Active Substance: APIXABAN
  3. MEPRON [Concomitant]
     Active Substance: ATOVAQUONE
  4. RITUXIMAB [Concomitant]
     Active Substance: RITUXIMAB

REACTIONS (2)
  - COVID-19 [Unknown]
  - Intentional dose omission [Unknown]

NARRATIVE: CASE EVENT DATE: 20230117
